FAERS Safety Report 20349264 (Version 2)
Quarter: 2022Q1

REPORT INFORMATION
  Report Type: Report from Study
  Country: US (occurrence: US)
  Receive Date: 20220119
  Receipt Date: 20220128
  Transmission Date: 20220424
  Serious: Yes (Other)
  Sender: FDA-Public Use
  Company Number: US-NOVARTISPH-NVSC2022US007772

PATIENT
  Age: 59 Year
  Sex: Female

DRUGS (16)
  1. AFINITOR [Suspect]
     Active Substance: EVEROLIMUS
     Indication: Endometrial hyperplasia
     Dosage: 10MG CAPSULE DAILY, HOWEVER PATIENT TOOK TWO 10MG CAPSULES DAILY
     Route: 048
     Dates: start: 20220105
  2. AFINITOR [Suspect]
     Active Substance: EVEROLIMUS
     Dosage: 10MG CAPSULE DAILY, HOWEVER PATIENT TOOK TWO 10MG CAPSULES DAILY
     Route: 048
     Dates: start: 20220106
  3. AFINITOR [Suspect]
     Active Substance: EVEROLIMUS
     Dosage: 10MG CAPSULE DAILY, HOWEVER PATIENT TOOK TWO 10MG CAPSULES DAILY
     Route: 048
     Dates: start: 20220107
  4. AFINITOR [Suspect]
     Active Substance: EVEROLIMUS
     Dosage: 10MG CAPSULE DAILY, HOWEVER PATIENT TOOK TWO 10MG CAPSULES DAILY
     Route: 048
     Dates: start: 20220109
  5. AFINITOR [Suspect]
     Active Substance: EVEROLIMUS
     Dosage: 10 MG, QD
     Route: 048
     Dates: start: 20220114
  6. ERGOCALCIFEROL [Concomitant]
     Active Substance: ERGOCALCIFEROL
     Indication: Prophylaxis
     Dosage: UNK
     Route: 065
     Dates: start: 20171113
  7. FERROUS SULFATE [Concomitant]
     Active Substance: FERROUS SULFATE
     Indication: Prophylaxis
     Dosage: 325 MG
     Route: 065
     Dates: start: 20180301
  8. SYNTHROID [Concomitant]
     Active Substance: LEVOTHYROXINE SODIUM
     Indication: Hypothyroidism
     Dosage: 137 UG
     Route: 065
     Dates: start: 20210512
  9. PRINIVIL [Concomitant]
     Active Substance: LISINOPRIL
     Indication: Hypertension
     Dosage: 10 MG
     Route: 065
     Dates: start: 20210709, end: 20211213
  10. METFORMIN [Concomitant]
     Active Substance: METFORMIN HYDROCHLORIDE
     Indication: Hyperglycaemia
     Dosage: 500 MG
     Route: 065
     Dates: start: 20201118, end: 20220106
  11. METFORMIN [Concomitant]
     Active Substance: METFORMIN HYDROCHLORIDE
     Dosage: 1000 MG
     Route: 065
     Dates: start: 20220106
  12. DITROPAN [Concomitant]
     Active Substance: OXYBUTYNIN CHLORIDE
     Indication: Hypertonic bladder
     Dosage: 5 MG
     Route: 065
     Dates: start: 20210709
  13. XARELTO [Concomitant]
     Active Substance: RIVAROXABAN
     Indication: Deep vein thrombosis
     Dosage: 10 MG
     Route: 065
     Dates: start: 20201118
  14. ZOLOFT [Concomitant]
     Active Substance: SERTRALINE HYDROCHLORIDE
     Indication: Adjustment disorder
     Dosage: 100 MG
     Route: 065
     Dates: start: 20210712
  15. DEXAMETHASONE [Concomitant]
     Active Substance: DEXAMETHASONE
     Indication: Prophylaxis
     Dosage: 0.5 MG/5ML
     Route: 065
     Dates: start: 20211110
  16. COZAAR [Concomitant]
     Active Substance: LOSARTAN POTASSIUM
     Indication: Hypertension
     Dosage: 25 MG
     Route: 065
     Dates: start: 20210103

REACTIONS (1)
  - Accidental overdose [Unknown]

NARRATIVE: CASE EVENT DATE: 20220105
